FAERS Safety Report 8247347-9 (Version None)
Quarter: 2012Q1

REPORT INFORMATION
  Report Type: 
  Country: None (occurrence: None)
  Receive Date: 20120330
  Receipt Date: 20120326
  Transmission Date: 20120608
  Serious: Yes (Hospitalization, Other)
  Sender: FDA-Public Use
  Company Number: KR-JNJFOC-20081206263

PATIENT
  Sex: Female
  Weight: 64 kg

DRUGS (48)
  1. GOLIMUMAB [Suspect]
     Route: 058
     Dates: start: 20080523
  2. GOLIMUMAB [Suspect]
     Route: 058
     Dates: start: 20081216
  3. METHOTREXATE [Concomitant]
     Route: 048
     Dates: start: 20080922, end: 20081216
  4. METHOTREXATE [Concomitant]
     Route: 048
     Dates: start: 20080721, end: 20080901
  5. ROSIDEN [Concomitant]
     Route: 061
     Dates: start: 20080626
  6. CELEBREX [Concomitant]
     Route: 048
     Dates: start: 20080213
  7. GOLIMUMAB [Suspect]
     Route: 058
     Dates: start: 20080212
  8. GOLIMUMAB [Suspect]
     Route: 058
     Dates: start: 20080724
  9. GOLIMUMAB [Suspect]
     Route: 058
     Dates: start: 20080917
  10. METHOTREXATE [Suspect]
     Indication: RHEUMATOID ARTHRITIS
     Route: 048
     Dates: start: 20070507, end: 20070507
  11. NICETILE [Concomitant]
     Route: 048
     Dates: start: 20080524
  12. METHOTREXATE [Concomitant]
     Route: 048
     Dates: start: 20080630, end: 20080704
  13. COUGH TAB [Concomitant]
     Route: 048
     Dates: start: 20081126, end: 20081211
  14. MACPERAN [Concomitant]
     Route: 048
     Dates: start: 20080213
  15. GOLIMUMAB [Suspect]
     Route: 058
     Dates: start: 20090108
  16. GOLIMUMAB [Suspect]
     Route: 058
     Dates: start: 20080306
  17. METHOTREXATE [Suspect]
     Route: 048
     Dates: start: 20071022, end: 20080623
  18. FOLIN [Concomitant]
     Route: 048
     Dates: start: 20070629
  19. GOLIMUMAB [Suspect]
     Route: 058
     Dates: start: 20070726
  20. GOLIMUMAB [Suspect]
     Route: 058
     Dates: start: 20071213
  21. GOLIMUMAB [Suspect]
     Route: 058
     Dates: start: 20080626
  22. FAMOTIDINE [Concomitant]
     Route: 048
     Dates: start: 20081126, end: 20081211
  23. GOLIMUMAB [Suspect]
     Indication: RHEUMATOID ARTHRITIS
     Route: 058
     Dates: start: 20070503
  24. GOLIMUMAB [Suspect]
     Route: 058
     Dates: start: 20070628
  25. GOLIMUMAB [Suspect]
     Route: 058
     Dates: start: 20071018
  26. GOLIMUMAB [Suspect]
     Route: 058
     Dates: start: 20071115
  27. METHOTREXATE [Suspect]
     Route: 048
     Dates: start: 20070604, end: 20071015
  28. METHOTREXATE [Concomitant]
     Route: 048
     Dates: start: 20080908, end: 20080915
  29. PREDNISOLONE [Concomitant]
     Route: 048
     Dates: start: 20080524
  30. GOLIMUMAB [Suspect]
     Route: 058
     Dates: start: 20070531
  31. GOLIMUMAB [Suspect]
     Route: 058
     Dates: start: 20070823
  32. GOLIMUMAB [Suspect]
     Route: 058
     Dates: start: 20070920
  33. GOLIMUMAB [Suspect]
     Route: 058
     Dates: start: 20081016
  34. METHOTREXATE [Suspect]
     Route: 048
     Dates: start: 20070423, end: 20070430
  35. METHOTREXATE [Concomitant]
     Route: 048
     Dates: start: 20081217
  36. CLAMONEX [Concomitant]
     Route: 048
     Dates: start: 20081126, end: 20081211
  37. ULTRACET [Concomitant]
     Route: 048
     Dates: start: 20080626, end: 20081215
  38. GOLIMUMAB [Suspect]
     Route: 058
     Dates: start: 20080403
  39. GOLIMUMAB [Suspect]
     Route: 058
     Dates: start: 20080502
  40. GOLIMUMAB [Suspect]
     Route: 058
     Dates: start: 20080821
  41. GOLIMUMAB [Suspect]
     Route: 058
     Dates: start: 20081113
  42. GOLIMUMAB [Suspect]
     Route: 058
     Dates: start: 20070405
  43. METHOTREXATE [Suspect]
     Route: 048
     Dates: start: 20070409, end: 20070416
  44. RETONAZE [Concomitant]
     Route: 048
     Dates: start: 20081126, end: 20081211
  45. STILLIN [Concomitant]
     Route: 048
     Dates: start: 20080213
  46. GOLIMUMAB [Suspect]
     Route: 058
     Dates: start: 20080109
  47. METHOTREXATE [Suspect]
     Route: 048
     Dates: start: 20070521, end: 20070528
  48. ROSIGEN [Concomitant]
     Route: 061
     Dates: start: 20080626

REACTIONS (1)
  - BREAST CANCER [None]
